FAERS Safety Report 7456144-3 (Version None)
Quarter: 2011Q2

REPORT INFORMATION
  Report Type: 
  Country: None (occurrence: None)
  Receive Date: 20110503
  Receipt Date: 20090930
  Transmission Date: 20111010
  Serious: Yes (Other)
  Sender: FDA-Public Use
  Company Number: US-BAYER-201041880NA

PATIENT
  Age: 68 Year
  Sex: Female
  Weight: 83.9 kg

DRUGS (9)
  1. LASIX [Concomitant]
     Dosage: 20 MG, BID
     Route: 048
  2. NIPRIDE [Concomitant]
  3. TEVETEN HCT [Concomitant]
     Dosage: 1 DAILY
     Route: 048
  4. AMIODARONE [Concomitant]
  5. LOVENOX [Concomitant]
     Dosage: 40 MG, QD
     Route: 048
  6. TRASYLOL [Suspect]
     Indication: CORONARY ARTERY BYPASS
  7. HEPARIN [Concomitant]
  8. VANCOMYCIN [Concomitant]
     Dosage: UNK
     Dates: start: 20050221
  9. TRASYLOL [Suspect]
     Indication: UNEVALUABLE EVENT
     Dosage: 200 ML, UNK
     Route: 042
     Dates: start: 20050304, end: 20050304

REACTIONS (13)
  - RENAL FAILURE [None]
  - ANXIETY [None]
  - RENAL INJURY [None]
  - FEAR [None]
  - EMOTIONAL DISTRESS [None]
  - INJURY [None]
  - UNEVALUABLE EVENT [None]
  - DEPRESSION [None]
  - MULTI-ORGAN FAILURE [None]
  - PAIN [None]
  - NERVOUSNESS [None]
  - FEAR OF DEATH [None]
  - ANHEDONIA [None]
